FAERS Safety Report 20902071 (Version 1)
Quarter: 2022Q2

REPORT INFORMATION
  Report Type: Spontaneous
  Country: IT (occurrence: IT)
  Receive Date: 20220601
  Receipt Date: 20220601
  Transmission Date: 20220721
  Serious: Yes (Hospitalization)
  Sender: FDA-Public Use
  Company Number: IT-MYLANLABS-2022M1041345

PATIENT
  Age: 77 Year
  Sex: Male

DRUGS (4)
  1. TICAGRELOR [Interacting]
     Active Substance: TICAGRELOR
     Indication: Antiplatelet therapy
     Dosage: 2 DOSAGE FORM
     Route: 048
  2. CANGRELOR [Interacting]
     Active Substance: CANGRELOR
     Indication: Antiplatelet therapy
     Dosage: 30 MICROGRAM/KILOGRAM, QMINUTE
     Route: 040
  3. CANGRELOR [Interacting]
     Active Substance: CANGRELOR
     Dosage: 4 MICROGRAM/KILOGRAM, QMINUTE
     Route: 042
  4. EVEROLIMUS [Concomitant]
     Active Substance: EVEROLIMUS
     Indication: Coronary artery occlusion
     Dosage: UNK
     Route: 065

REACTIONS (2)
  - Dyspnoea [Recovered/Resolved]
  - Drug interaction [Recovered/Resolved]
